FAERS Safety Report 20219354 (Version 2)
Quarter: 2021Q4

REPORT INFORMATION
  Report Type: Spontaneous
  Country: DE (occurrence: DE)
  Receive Date: 20211222
  Receipt Date: 20211228
  Transmission Date: 20220303
  Serious: Yes (Life-Threatening)
  Sender: FDA-Public Use
  Company Number: DE-Fresenius Kabi-FK202114309

PATIENT
  Age: 34 Year
  Sex: Male

DRUGS (6)
  1. MELPHALAN [Suspect]
     Active Substance: MELPHALAN
     Indication: Metastases to liver
     Dosage: HIGH DOSE (3 MG KG^-1 IDEAL BODY WEIGHT)
     Route: 050
  2. PROPOFOL [Concomitant]
     Active Substance: PROPOFOL
     Indication: General anaesthesia
     Dosage: 1,0-2,0 MG KG^-1
     Route: 065
  3. ROCURONIUM [Concomitant]
     Active Substance: ROCURONIUM BROMIDE
     Indication: General anaesthesia
     Dosage: 0,6-1,0 MG KG^-1
     Route: 065
  4. NOREPINEPHRINE BITARTRATE [Concomitant]
     Active Substance: NOREPINEPHRINE BITARTRATE
     Indication: Haemodynamic instability
     Route: 065
  5. HEPARIN [Concomitant]
     Active Substance: HEPARIN SODIUM
     Indication: Anticoagulant therapy
     Dosage: 25 UNITS
     Route: 065
  6. ALLOPURINOL SODIUM [Concomitant]
     Active Substance: ALLOPURINOL SODIUM
     Indication: Tumour lysis syndrome
     Route: 048

REACTIONS (4)
  - Haemodynamic instability [Recovering/Resolving]
  - Pulmonary oedema [Recovering/Resolving]
  - Bronchospasm [Recovering/Resolving]
  - Acute kidney injury [Recovering/Resolving]
